FAERS Safety Report 19757545 (Version 1)
Quarter: 2021Q3

REPORT INFORMATION
  Report Type: Spontaneous
  Country: PL (occurrence: PL)
  Receive Date: 20210828
  Receipt Date: 20210828
  Transmission Date: 20211014
  Serious: Yes (Hospitalization)
  Sender: FDA-Public Use
  Company Number: PL-ACCORD-236582

PATIENT
  Age: 54 Year
  Sex: Female

DRUGS (8)
  1. TARDYFERON 80 [Concomitant]
     Dosage: DOSE: 1X1
     Route: 048
  2. FUROSEMIDE. [Suspect]
     Active Substance: FUROSEMIDE
     Indication: PRODUCT USED FOR UNKNOWN INDICATION
     Dosage: DOSE: 1X1
     Route: 048
  3. ATOSSA 8 [Concomitant]
     Dosage: DOSE: 2X1
     Route: 048
  4. EUTHYROX [Concomitant]
     Active Substance: LEVOTHYROXINE SODIUM
     Dosage: DOSE: 1X1
     Route: 048
  5. SEVREDOL [Concomitant]
     Active Substance: MORPHINE
     Dosage: DOSE: 1X1 AD HOC
     Route: 048
  6. KALIPOZ [Concomitant]
     Active Substance: POTASSIUM CHLORIDE
     Dosage: DOSE: 1X1
     Route: 048
  7. CLEXANE 40 [Concomitant]
     Dosage: DOSE: 1X1
     Route: 042
  8. ESPUMISAN 40 [Concomitant]
     Dosage: DOSE: 1X1
     Route: 048

REACTIONS (1)
  - Hypokalaemia [Unknown]

NARRATIVE: CASE EVENT DATE: 20210430
